FAERS Safety Report 12185821 (Version 1)
Quarter: 2016Q1

REPORT INFORMATION
  Report Type: Spontaneous
  Country: US (occurrence: US)
  Receive Date: 20160317
  Receipt Date: 20160317
  Transmission Date: 20160526
  Serious: Yes (Hospitalization)
  Sender: FDA-Public Use
  Company Number: US-HOSPIRA-3206954

PATIENT
  Age: 63 Year
  Sex: Male
  Weight: 106 kg

DRUGS (5)
  1. SPIRONOLACTONE. [Suspect]
     Active Substance: SPIRONOLACTONE
     Indication: PRODUCT USED FOR UNKNOWN INDICATION
  2. INVESTIGATIONAL DRUG [Suspect]
     Active Substance: INVESTIGATIONAL PRODUCT
     Indication: CARDIAC FAILURE CHRONIC
     Dosage: CEP-41750 VS. PLACEBO
     Route: 032
     Dates: start: 20141210, end: 20141210
  3. FUROSEMIDE. [Suspect]
     Active Substance: FUROSEMIDE
     Indication: PRODUCT USED FOR UNKNOWN INDICATION
  4. CARVEDILOL. [Suspect]
     Active Substance: CARVEDILOL
     Indication: PRODUCT USED FOR UNKNOWN INDICATION
  5. LISINOPRIL. [Suspect]
     Active Substance: LISINOPRIL
     Indication: PRODUCT USED FOR UNKNOWN INDICATION

REACTIONS (7)
  - Encephalopathy [Recovered/Resolved]
  - Dehydration [Unknown]
  - Staphylococcal infection [Recovered/Resolved]
  - Syncope [Unknown]
  - Enterococcal bacteraemia [Unknown]
  - Inflammation [Recovered/Resolved]
  - Hypovolaemia [Unknown]

NARRATIVE: CASE EVENT DATE: 20151123
